FAERS Safety Report 16354013 (Version 2)
Quarter: 2019Q2

REPORT INFORMATION
  Report Type: Report from Study
  Country: US (occurrence: US)
  Receive Date: 20190524
  Receipt Date: 20190529
  Transmission Date: 20190711
  Serious: No
  Sender: FDA-Public Use
  Company Number: PHEH2019US021949

PATIENT
  Sex: Male

DRUGS (2)
  1. ENTRESTO [Suspect]
     Active Substance: SACUBITRIL\VALSARTAN
     Indication: CARDIAC FAILURE CONGESTIVE
     Dosage: 1 DF, (49 MG SACUBITRIL, 51 MG VALSARTAN) BID
     Route: 048
  2. ENTRESTO [Suspect]
     Active Substance: SACUBITRIL\VALSARTAN
     Dosage: 1 DF, (97 MG SACUBITRIL, 103 MG VALSARTAN) BID
     Route: 048

REACTIONS (4)
  - Salivary hypersecretion [Unknown]
  - Cough [Unknown]
  - Nausea [Unknown]
  - Sneezing [Unknown]
